FAERS Safety Report 7565651-4 (Version None)
Quarter: 2011Q2

REPORT INFORMATION
  Report Type: 
  Country: None (occurrence: None)
  Receive Date: 20110616
  Receipt Date: 20110426
  Transmission Date: 20111010
  Serious: Yes (Other)
  Sender: FDA-Public Use
  Company Number: AUR-APL-2011-01452

PATIENT
  Age: 67 Year
  Sex: Female
  Weight: 75.2971 kg

DRUGS (9)
  1. VITAMIN E [Concomitant]
  2. CITRACAL [Concomitant]
  3. SIMVASTATIN [Suspect]
     Indication: BLOOD CHOLESTEROL INCREASED
     Dosage: 40 MG, DAILY, ORAL
     Route: 048
     Dates: start: 20100901, end: 20110315
  4. ATENOLOL [Concomitant]
  5. MULTI-VITAMIN [Concomitant]
  6. VITAMIN B COMPLEX CAP [Concomitant]
  7. FLAX OIL [Concomitant]
  8. OMEGA [Concomitant]
  9. FLEXAMINE (GLUCOSAMINE) [Concomitant]

REACTIONS (4)
  - PAIN [None]
  - MYALGIA [None]
  - INSOMNIA [None]
  - FEELING ABNORMAL [None]
